FAERS Safety Report 7070712-2 (Version None)
Quarter: 2010Q4

REPORT INFORMATION
  Report Type: 
  Country: None (occurrence: None)
  Receive Date: 20101029
  Receipt Date: 20101025
  Transmission Date: 20110411
  Serious: Yes (Life-Threatening, Hospitalization, Other)
  Sender: FDA-Public Use
  Company Number: JP-B.I. PHARMACEUTICALS,INC./RIDGEFIELD-2010-BP-11529NB

PATIENT
  Sex: Male
  Weight: 58 kg

DRUGS (10)
  1. BI-SIFROL TABLETS [Suspect]
     Indication: PARKINSON'S DISEASE
     Dosage: 0.5 MG
     Route: 048
     Dates: start: 20100525
  2. LENDORMIN [Suspect]
     Indication: INSOMNIA
     Dosage: 0.25 MG
     Route: 048
     Dates: start: 20101001, end: 20101007
  3. SELEGILINE HCL [Concomitant]
     Dosage: 5 MG
     Route: 048
     Dates: start: 20100525
  4. CARBIDOPA AND LEVODOPA [Concomitant]
     Dosage: 300 MG
     Route: 048
     Dates: start: 20100526
  5. COMTAN [Concomitant]
     Dosage: 400 MG
     Route: 048
     Dates: start: 20100713
  6. CANDESARTAN CILEXETIL AND HYDROCHLOROTHIAZIDE [Concomitant]
     Dosage: 1DF
     Route: 048
  7. NORVASC [Concomitant]
     Dosage: 5 MG
     Route: 048
     Dates: start: 20100607
  8. PLAVIX [Concomitant]
     Dosage: 75 MG
     Route: 048
  9. ARICEPT [Concomitant]
     Dosage: 3 MG
     Route: 048
     Dates: start: 20100907
  10. YOKU-KAN-SAN [Concomitant]
     Dosage: 7.5 G
     Route: 048
     Dates: start: 20100907

REACTIONS (3)
  - ATONIC SEIZURES [None]
  - DEPRESSED LEVEL OF CONSCIOUSNESS [None]
  - SOMNOLENCE [None]
